FAERS Safety Report 4429628-X (Version None)
Quarter: 2004Q3

REPORT INFORMATION
  Report Type: 
  Country: None (occurrence: None)
  Receive Date: 20040819
  Receipt Date: 20040620
  Transmission Date: 20050211
  Serious: Yes (Other)
  Sender: FDA-Public Use
  Company Number: PHEH2004US06765

PATIENT
  Age: 68 Year
  Sex: Male

DRUGS (1)
  1. FAMVIR [Suspect]
     Dosage: 500 MG, UNK
     Route: 048

REACTIONS (4)
  - BLOOD PRESSURE DECREASED [None]
  - COLD SWEAT [None]
  - CONVULSION [None]
  - SYNCOPE [None]
